FAERS Safety Report 5494053-X (Version None)
Quarter: 2007Q4

REPORT INFORMATION
  Report Type: 
  Country: None (occurrence: None)
  Receive Date: 20071023
  Receipt Date: 20071011
  Transmission Date: 20080405
  Serious: Yes (Hospitalization)
  Sender: FDA-Public Use
  Company Number: US-PFIZER INC-2007087193

PATIENT
  Sex: Male

DRUGS (8)
  1. ALDACTONE [Suspect]
     Indication: HYPERTENSION
     Dosage: DAILY DOSE:25MG-FREQ:FREQUENCY: 25MG, QOD
     Route: 048
  2. BLINDED SPIRONOLACTONE [Suspect]
     Indication: PROPHYLAXIS
     Route: 048
  3. BLINDED SPIRONOLACTONE [Suspect]
     Indication: EMBOLISM
  4. LASIX [Suspect]
     Indication: HYPERTENSION
     Dosage: DAILY DOSE:40MG
     Route: 048
  5. LASIX [Suspect]
     Indication: CARDIAC FAILURE CONGESTIVE
  6. VASOTEC [Suspect]
     Indication: HYPERTENSION
     Dosage: DAILY DOSE:10MG
     Route: 048
  7. VASOTEC [Suspect]
     Indication: CARDIAC FAILURE CONGESTIVE
  8. DIGOXIN [Suspect]
     Indication: ISCHAEMIC CARDIOMYOPATHY
     Dosage: DAILY DOSE:.125MG
     Route: 048

REACTIONS (3)
  - CARDIAC FAILURE CONGESTIVE [None]
  - HYPOTENSION [None]
  - RENAL FAILURE [None]
